FAERS Safety Report 8355075-4 (Version None)
Quarter: 2012Q2

REPORT INFORMATION
  Report Type: 
  Country: None (occurrence: None)
  Receive Date: 20120511
  Receipt Date: 20120502
  Transmission Date: 20120825
  Serious: Yes (Hospitalization)
  Sender: FDA-Public Use
  Company Number: DE-ELI_LILLY_AND_COMPANY-DE201205001378

PATIENT
  Age: 61 Year
  Sex: Female
  Weight: 97 kg

DRUGS (4)
  1. EFFIENT [Suspect]
     Indication: ACUTE MYOCARDIAL INFARCTION
     Dosage: 60 MG, LOADING DOSE
     Dates: start: 20111218
  2. EFFIENT [Suspect]
     Dosage: 10 MG, QD, MAINTENANCE DOSE
     Dates: start: 20111218
  3. ASPIRIN [Concomitant]
     Dosage: 100 MG, QD, MAINTENANCE DOSE
  4. ASPIRIN [Concomitant]
     Dosage: 300-500 MG, LOADING DOSE

REACTIONS (2)
  - TROPONIN I INCREASED [None]
  - IN-STENT CORONARY ARTERY RESTENOSIS [None]
